FAERS Safety Report 8983055 (Version 2)
Quarter: 2013Q2

REPORT INFORMATION
  Report Type: Spontaneous
  Country: JP (occurrence: JP)
  Receive Date: 20121224
  Receipt Date: 20130603
  Transmission Date: 20140414
  Serious: Yes (Hospitalization)
  Sender: FDA-Public Use
  Company Number: JP-AMGEN-JPNSP2012082517

PATIENT
  Sex: Female

DRUGS (3)
  1. RANMARK [Suspect]
     Indication: BONE LESION
     Dosage: UNKNOWN
     Route: 058
     Dates: start: 20121126
  2. TS-1 [Concomitant]
     Dosage: UNKNOWN
     Route: 065
  3. CISPLATIN [Concomitant]
     Dosage: UNKNOWN
     Route: 065

REACTIONS (1)
  - Hypocalcaemia [Not Recovered/Not Resolved]
